FAERS Safety Report 15961115 (Version 2)
Quarter: 2019Q1

REPORT INFORMATION
  Report Type: Spontaneous
  Country: AU (occurrence: AU)
  Receive Date: 20190214
  Receipt Date: 20190218
  Transmission Date: 20190417
  Serious: Yes (Other)
  Sender: FDA-Public Use
  Company Number: AU-MYLANLABS-2019M1013844

PATIENT
  Sex: Female

DRUGS (2)
  1. MOXICAM (MELOXICAM) [Suspect]
     Active Substance: MELOXICAM
     Indication: PAIN
     Dosage: 15 MILLIGRAM, QD
     Dates: end: 2019
  2. MOXICAM (MELOXICAM) [Suspect]
     Active Substance: MELOXICAM
     Indication: RHEUMATOID ARTHRITIS

REACTIONS (2)
  - Eye haemorrhage [Unknown]
  - Vision blurred [Unknown]

NARRATIVE: CASE EVENT DATE: 2019
